FAERS Safety Report 6159572-1 (Version None)
Quarter: 2009Q2

REPORT INFORMATION
  Report Type: 
  Country: None (occurrence: None)
  Receive Date: 20090420
  Receipt Date: 20090414
  Transmission Date: 20091009
  Serious: Yes (Death)
  Sender: FDA-Public Use
  Company Number: US-CELGENEUS-163-21880-09020717

PATIENT
  Sex: Female

DRUGS (1)
  1. REVLIMID [Suspect]
     Indication: MYELODYSPLASTIC SYNDROME
     Route: 048
     Dates: start: 20090205, end: 20090212

REACTIONS (4)
  - LIP SWELLING [None]
  - NEOPLASM PROGRESSION [None]
  - SWELLING FACE [None]
  - SWOLLEN TONGUE [None]
